FAERS Safety Report 20782971 (Version 2)
Quarter: 2022Q2

REPORT INFORMATION
  Report Type: Spontaneous
  Country: US (occurrence: US)
  Receive Date: 20220504
  Receipt Date: 20220607
  Transmission Date: 20220721
  Serious: No
  Sender: FDA-Public Use
  Company Number: US-PFIZER INC-202200582304

PATIENT
  Age: 65 Year
  Sex: Female

DRUGS (3)
  1. IBRANCE [Suspect]
     Active Substance: PALBOCICLIB
     Indication: Breast cancer female
     Dosage: 125 MG
     Dates: start: 20220325
  2. LOSARTAN [Concomitant]
     Active Substance: LOSARTAN
     Dosage: UNK
  3. LETROZOLE [Concomitant]
     Active Substance: LETROZOLE
     Dosage: UNK

REACTIONS (8)
  - Tongue discomfort [Unknown]
  - Mucosal inflammation [Unknown]
  - Breast pain [Unknown]
  - Oral discomfort [Unknown]
  - Urinary tract infection bacterial [Unknown]
  - Eye irritation [Unknown]
  - Vulvovaginal dryness [Unknown]
  - Vulvovaginal burning sensation [Unknown]
